FAERS Safety Report 8803265 (Version 3)
Quarter: 2013Q1

REPORT INFORMATION
  Report Type: Spontaneous
  Country: IT (occurrence: IT)
  Receive Date: 20120924
  Receipt Date: 20130115
  Transmission Date: 20140127
  Serious: Yes (Hospitalization)
  Sender: FDA-Public Use
  Company Number: IT-JNJFOC-20120906907

PATIENT
  Age: 54 Year
  Sex: Male

DRUGS (2)
  1. REMICADE [Suspect]
     Indication: PSORIASIS
     Dosage: POSSIBLY STARTED ON 12-NOV-2012
     Route: 042
     Dates: start: 201211
  2. REMICADE [Suspect]
     Indication: PSORIASIS
     Dosage: 100 MG STRENGTH
     Route: 042
     Dates: start: 20110126, end: 20120420

REACTIONS (1)
  - Hepatitis C [Recovered/Resolved]
